FAERS Safety Report 15846647 (Version 2)
Quarter: 2019Q1

REPORT INFORMATION
  Report Type: Report from Study
  Country: None (occurrence: CH)
  Receive Date: 20190121
  Receipt Date: 20190214
  Transmission Date: 20190417
  Serious: Yes (Other)
  Sender: FDA-Public Use
  Company Number: CH-ABBVIE-19S-151-2627670-00

PATIENT
  Sex: Male

DRUGS (3)
  1. DUODOPA [Suspect]
     Active Substance: CARBIDOPA\LEVODOPA
     Indication: PARKINSON^S DISEASE
     Route: 050
     Dates: start: 20170207, end: 20170216
  2. DUODOPA [Suspect]
     Active Substance: CARBIDOPA\LEVODOPA
     Dosage: MD: 14 ML, CRD: 4.7 ML, ED: 2 ML 16 H THERAPY
     Route: 050
     Dates: start: 20170216, end: 20170614
  3. DUODOPA [Suspect]
     Active Substance: CARBIDOPA\LEVODOPA
     Dosage: MD: 14 ML,CRD: 4.5 ML, ED: 2 ML, BLOCKING TIME ED 1 H 16 H THERAPY
     Route: 050
     Dates: start: 20170614

REACTIONS (4)
  - Petit mal epilepsy [Recovered/Resolved]
  - Dementia [Unknown]
  - Fall [Recovered/Resolved]
  - Anxiety [Recovering/Resolving]
